FAERS Safety Report 5388663-8 (Version None)
Quarter: 2007Q3

REPORT INFORMATION
  Report Type: 
  Country: None (occurrence: None)
  Receive Date: 20070712
  Receipt Date: 20070703
  Transmission Date: 20080115
  Serious: Yes (Other)
  Sender: FDA-Public Use
  Company Number: 157343ISR

PATIENT
  Age: 30 Year
  Sex: Female

DRUGS (1)
  1. COPAXONE [Suspect]
     Indication: MULTIPLE SCLEROSIS
     Dosage: 20 MG (20 MG, 1 IN 1 D) SUBCUTANEOUS
     Route: 058
     Dates: end: 20061001

REACTIONS (6)
  - CELL-MEDIATED IMMUNE DEFICIENCY [None]
  - HERPES SIMPLEX [None]
  - HERPES ZOSTER [None]
  - HYPER IGM SYNDROME [None]
  - IDIOPATHIC THROMBOCYTOPENIC PURPURA [None]
  - VAGINAL CANDIDIASIS [None]
